FAERS Safety Report 8011578-3 (Version None)
Quarter: 2011Q4

REPORT INFORMATION
  Report Type: 
  Country: None (occurrence: None)
  Receive Date: 20111228
  Receipt Date: 20111219
  Transmission Date: 20120403
  Serious: Yes (Hospitalization)
  Sender: FDA-Public Use
  Company Number: ES-JNJFOC-20111208132

PATIENT
  Sex: Female

DRUGS (2)
  1. REMICADE [Suspect]
     Indication: CROHN'S DISEASE
     Route: 042
     Dates: start: 20110101
  2. REMICADE [Suspect]
     Dosage: SECOND INFUSION
     Route: 042
     Dates: start: 20111201

REACTIONS (3)
  - METABOLIC ENCEPHALOPATHY [None]
  - BLINDNESS TRANSIENT [None]
  - TOXIC ENCEPHALOPATHY [None]
